FAERS Safety Report 4478308-3 (Version None)
Quarter: 2004Q4

REPORT INFORMATION
  Report Type: 
  Country: None (occurrence: None)
  Receive Date: 20041019
  Receipt Date: 20041011
  Transmission Date: 20050328
  Serious: Yes (Hospitalization)
  Sender: FDA-Public Use
  Company Number: US-ROCHE-383092

PATIENT
  Age: 47 Year
  Sex: Female

DRUGS (4)
  1. PEGASYS [Suspect]
     Indication: HEPATITIS C
     Route: 058
     Dates: start: 20040525, end: 20040915
  2. COPEGUS [Suspect]
     Indication: HEPATITIS C
     Route: 048
     Dates: start: 20040525, end: 20040715
  3. METFORMIN HCL [Concomitant]
     Route: 048
     Dates: start: 20030615
  4. HYZAAR [Concomitant]
     Route: 048
     Dates: start: 20030615

REACTIONS (10)
  - ABDOMINAL DISTENSION [None]
  - ABDOMINAL PAIN UPPER [None]
  - ANAEMIA [None]
  - DEPRESSION [None]
  - FLUID RETENTION [None]
  - LIVER DISORDER [None]
  - OEDEMA PERIPHERAL [None]
  - SPINAL DISORDER [None]
  - VAGINAL HAEMORRHAGE [None]
  - WEIGHT INCREASED [None]
